FAERS Safety Report 25711341 (Version 1)
Quarter: 2025Q3

REPORT INFORMATION
  Report Type: Spontaneous
  Country: US (occurrence: None)
  Receive Date: 20250821
  Receipt Date: 20250821
  Transmission Date: 20251021
  Serious: Yes (Hospitalization)
  Sender: FDA-CTU
  Company Number: None

PATIENT
  Age: 35 Year
  Sex: Female
  Weight: 74.25 kg

DRUGS (3)
  1. ZEPBOUND [Suspect]
     Active Substance: TIRZEPATIDE
     Indication: Polycystic ovarian syndrome
     Dates: start: 20240923, end: 20250724
  2. ZEPBOUND [Suspect]
     Active Substance: TIRZEPATIDE
     Indication: Weight control
  3. NAPROXEN [Concomitant]
     Active Substance: NAPROXEN

REACTIONS (4)
  - Plasma cell mastitis [None]
  - Gastroenteritis viral [None]
  - Therapy interrupted [None]
  - Breast abscess [None]

NARRATIVE: CASE EVENT DATE: 20241229
